FAERS Safety Report 7298673-1 (Version None)
Quarter: 2011Q1

REPORT INFORMATION
  Report Type: 
  Country: None (occurrence: None)
  Receive Date: 20110207
  Receipt Date: 20110121
  Transmission Date: 20110831
  Serious: Yes (Other)
  Sender: FDA-Public Use
  Company Number: 2011AP000061

PATIENT
  Age: 61 Year
  Sex: Male

DRUGS (3)
  1. MYCOPHENOLATE MOFETIL [Suspect]
     Indication: IMMUNOSUPPRESSION
     Dosage: BID
  2. PREDNISONE TAB [Concomitant]
  3. CICLOSPORIN [Concomitant]

REACTIONS (3)
  - TRANSPLANT FAILURE [None]
  - COLITIS [None]
  - ACUTE GRAFT VERSUS HOST DISEASE IN INTESTINE [None]
